FAERS Safety Report 5763673-7 (Version None)
Quarter: 2008Q2

REPORT INFORMATION
  Report Type: 
  Country: None (occurrence: None)
  Receive Date: 20080610
  Receipt Date: 20080126
  Transmission Date: 20081010
  Serious: No
  Sender: FDA-Public Use
  Company Number: US-BAYER-200814346NA

PATIENT
  Sex: Female

DRUGS (2)
  1. CLIMARA [Suspect]
     Indication: HORMONE LEVEL ABNORMAL
     Route: 062
  2. ORAL CONTRACEPTIVE NOS [Concomitant]

REACTIONS (2)
  - OVARIAN CYST [None]
  - PHARMACEUTICAL PRODUCT COMPLAINT [None]
